FAERS Safety Report 25228833 (Version 1)
Quarter: 2025Q2

REPORT INFORMATION
  Report Type: Spontaneous
  Country: US (occurrence: US)
  Receive Date: 20250423
  Receipt Date: 20250423
  Transmission Date: 20250717
  Serious: Yes (Other)
  Sender: SANDOZ
  Company Number: US-MLMSERVICE-20180727-1306282-1

PATIENT
  Age: 3 Month
  Sex: Female

DRUGS (1)
  1. MOMETASONE [Suspect]
     Active Substance: MOMETASONE
     Indication: Seborrhoeic dermatitis
     Route: 065

REACTIONS (2)
  - Hypothalamic pituitary adrenal axis suppression [Recovering/Resolving]
  - Cushingoid [Unknown]
